APPROVED DRUG PRODUCT: MIDOL
Active Ingredient: IBUPROFEN
Strength: 200MG **Federal Register determination that product was not discontinued or withdrawn for safety or effectiveness reasons**
Dosage Form/Route: CAPSULE;ORAL
Application: A071002 | Product #001
Applicant: BAYER HEALTHCARE LLC
Approved: Sep 2, 1987 | RLD: No | RS: No | Type: DISCN